FAERS Safety Report 10590463 (Version 1)
Quarter: 2014Q4

REPORT INFORMATION
  Report Type: Spontaneous
  Country: NO (occurrence: NO)
  Receive Date: 20141118
  Receipt Date: 20141118
  Transmission Date: 20150529
  Serious: Yes (Other)
  Sender: FDA-Public Use
  Company Number: NO-PFIZER INC-2014314907

PATIENT
  Age: 38 Year
  Sex: Female

DRUGS (1)
  1. LOETTE-28 [Suspect]
     Active Substance: ETHINYL ESTRADIOL\LEVONORGESTREL
     Dosage: UNK
     Dates: end: 2014

REACTIONS (2)
  - Eye infection [Not Recovered/Not Resolved]
  - Xanthelasma [Not Recovered/Not Resolved]
